FAERS Safety Report 7943234-1 (Version None)
Quarter: 2011Q4

REPORT INFORMATION
  Report Type: 
  Country: None (occurrence: None)
  Receive Date: 20111128
  Receipt Date: 20111121
  Transmission Date: 20120403
  Serious: Yes (Hospitalization, Other)
  Sender: FDA-Public Use
  Company Number: PHHY2011BR102225

PATIENT
  Age: 87 Year
  Sex: Female

DRUGS (3)
  1. SYMBICORT [Concomitant]
  2. FORMOTEROL FUMARATE [Suspect]
     Indication: CHRONIC OBSTRUCTIVE PULMONARY DISEASE
     Dosage: ONCE A DAY
  3. SPIRIVA [Concomitant]
     Indication: CHRONIC OBSTRUCTIVE PULMONARY DISEASE
     Dosage: ONCE A DAY

REACTIONS (3)
  - ACUTE PULMONARY OEDEMA [None]
  - PRODUCT QUALITY ISSUE [None]
  - DEVICE BREAKAGE [None]
